FAERS Safety Report 16827934 (Version 1)
Quarter: 2019Q3

REPORT INFORMATION
  Report Type: Spontaneous
  Country: US (occurrence: US)
  Receive Date: 20190729
  Receipt Date: 20190729
  Transmission Date: 20191005
  Serious: No
  Sender: FDA-Public Use
  Company Number: None

PATIENT
  Age: 50 Year
  Sex: Female

DRUGS (1)
  1. IBRANCE [Suspect]
     Active Substance: PALBOCICLIB
     Indication: NEOPLASM MALIGNANT
     Dosage: ?          OTHER FREQUENCY:QD 21ON AND 7 OFF;?
     Route: 048
     Dates: start: 20190628

REACTIONS (8)
  - Rash [None]
  - Dry skin [None]
  - Dysphagia [None]
  - Respiratory tract congestion [None]
  - Cough [None]
  - Alopecia [None]
  - Headache [None]
  - Visual impairment [None]

NARRATIVE: CASE EVENT DATE: 20190628
